FAERS Safety Report 10297492 (Version 3)
Quarter: 2014Q3

REPORT INFORMATION
  Report Type: Spontaneous
  Country: JP (occurrence: JP)
  Receive Date: 20140711
  Receipt Date: 20140902
  Transmission Date: 20150326
  Serious: Yes (Death, Other)
  Sender: FDA-Public Use
  Company Number: JP-JNJFOC-20140701055

PATIENT
  Age: 10 Decade
  Sex: Female

DRUGS (3)
  1. DUROTEP MT [Suspect]
     Active Substance: FENTANYL
     Indication: CANCER PAIN
     Dosage: PER 3 DAY
     Route: 062
     Dates: end: 20140630
  2. DUROTEP MT [Suspect]
     Active Substance: FENTANYL
     Indication: CANCER PAIN
     Dosage: PER 3 DAY
     Route: 062
  3. RACOL [Concomitant]
     Active Substance: AMINO ACIDS\DEXTROSE\ELECTROLYTES NOS
     Indication: NUTRITIONAL SUPPLEMENTATION
     Route: 065
     Dates: end: 20130702

REACTIONS (2)
  - Neoplasm malignant [Fatal]
  - Respiratory depression [Not Recovered/Not Resolved]

NARRATIVE: CASE EVENT DATE: 201406
